FAERS Safety Report 15166177 (Version 1)
Quarter: 2018Q3

REPORT INFORMATION
  Report Type: Spontaneous
  Country: BR (occurrence: BR)
  Receive Date: 20180719
  Receipt Date: 20180719
  Transmission Date: 20181010
  Serious: Yes (Other)
  Sender: FDA-Public Use
  Company Number: BR-LPDUSPRD-20181245

PATIENT
  Sex: Male
  Weight: 3.6 kg

DRUGS (3)
  1. VENOFER [Suspect]
     Active Substance: IRON SUCROSE
     Dosage: 2 AMP.(SINGLE DOSE),5 IN TOTAL
     Route: 064
  2. MALTOFER (IRON POLYMALTOSE) [Suspect]
     Active Substance: IRON POLYMALTOSE
     Dosage: 100 MG, 1 IN 1 DAY
     Route: 063
     Dates: start: 201707
  3. DOGMATIL [Suspect]
     Active Substance: SULPIRIDE
     Dosage: UNKNOWN
     Route: 065

REACTIONS (6)
  - Haematochezia [Unknown]
  - Dermatitis diaper [Recovered/Resolved]
  - Anal fissure [Recovered/Resolved]
  - Foetal exposure during pregnancy [Recovered/Resolved]
  - Exposure via breast milk [None]
  - Abdominal pain [Recovered/Resolved]
